FAERS Safety Report 7352695-0 (Version None)
Quarter: 2011Q1

REPORT INFORMATION
  Report Type: 
  Country: None (occurrence: None)
  Receive Date: 20110302
  Receipt Date: 20101207
  Transmission Date: 20110831
  Serious: Yes (Other)
  Sender: FDA-Public Use
  Company Number: 163-21880-10121592

PATIENT
  Age: 61 Year
  Sex: Male

DRUGS (12)
  1. LOSARTAN (LOSARTAN) [Concomitant]
  2. SIMVASTATIN [Concomitant]
  3. REVLIMID [Suspect]
     Indication: MULTIPLE MYELOMA
     Dosage: SEE IMAGE
     Route: 048
     Dates: start: 20101001
  4. REVLIMID [Suspect]
     Indication: MULTIPLE MYELOMA
     Dosage: SEE IMAGE
     Route: 048
     Dates: start: 20080901, end: 20090413
  5. REVLIMID [Suspect]
     Indication: MULTIPLE MYELOMA
     Dosage: SEE IMAGE
     Route: 048
     Dates: start: 20090804
  6. REVLIMID [Suspect]
     Indication: MULTIPLE MYELOMA
     Dosage: SEE IMAGE
     Route: 048
     Dates: start: 20101130
  7. DEXAMETHASONE [Suspect]
     Indication: PRODUCT USED FOR UNKNOWN INDICATION
     Dosage: 40 MG, QWK, UNK
  8. RANITIDINE [Concomitant]
  9. ARIXTRA [Concomitant]
  10. XELODA [Concomitant]
  11. AREDIA [Concomitant]
  12. CARVEDILOL [Concomitant]

REACTIONS (6)
  - ANXIETY [None]
  - DIARRHOEA [None]
  - FEELING JITTERY [None]
  - PRURITUS [None]
  - MUSCLE SPASMS [None]
  - VENOUS THROMBOSIS LIMB [None]
